FAERS Safety Report 15690743 (Version 2)
Quarter: 2019Q2

REPORT INFORMATION
  Report Type: Spontaneous
  Country: US (occurrence: US)
  Receive Date: 20181205
  Receipt Date: 20190624
  Transmission Date: 20190711
  Serious: Yes (Death, Other)
  Sender: FDA-Public Use
  Company Number: US-PFIZER INC-2018500053

PATIENT
  Age: 75 Year
  Sex: Male

DRUGS (1)
  1. SUTENT [Suspect]
     Active Substance: SUNITINIB MALATE
     Indication: LUNG CARCINOMA CELL TYPE UNSPECIFIED RECURRENT
     Dosage: 50 MG, UNK
     Dates: end: 20181119

REACTIONS (5)
  - Death [Fatal]
  - Noninfective gingivitis [Unknown]
  - Ageusia [Unknown]
  - Off label use [Unknown]
  - Product used for unknown indication [Unknown]
